FAERS Safety Report 13739296 (Version 2)
Quarter: 2018Q2

REPORT INFORMATION
  Report Type: Spontaneous
  Country: JP (occurrence: JP)
  Receive Date: 20170710
  Receipt Date: 20180607
  Transmission Date: 20180711
  Serious: Yes (Other)
  Sender: FDA-Public Use
  Company Number: JP-CELGENEUS-JPN-20170610131

PATIENT
  Age: 76 Year
  Sex: Female

DRUGS (1)
  1. REVLIMID [Suspect]
     Active Substance: LENALIDOMIDE
     Indication: ADULT T-CELL LYMPHOMA/LEUKAEMIA
     Dosage: 10 MILLIGRAM
     Route: 048
     Dates: start: 20170407, end: 201704

REACTIONS (2)
  - Blood calcium increased [Unknown]
  - Adult T-cell lymphoma/leukaemia [Unknown]

NARRATIVE: CASE EVENT DATE: 201704
